FAERS Safety Report 5500168-X (Version None)
Quarter: 2007Q4

REPORT INFORMATION
  Report Type: 
  Country: None (occurrence: None)
  Receive Date: 20071025
  Receipt Date: 20071016
  Transmission Date: 20080405
  Serious: Yes (Other)
  Sender: FDA-Public Use
  Company Number: 019639

PATIENT
  Age: 35 Year
  Sex: Male

DRUGS (1)
  1. ANTABUSE [Suspect]
     Indication: ALCOHOLISM
     Dosage: 400 MG, QD

REACTIONS (11)
  - AGITATION [None]
  - ALCOHOL INTERACTION [None]
  - ANXIETY [None]
  - BLOOD ALCOHOL INCREASED [None]
  - HOT FLUSH [None]
  - HYPOTENSION [None]
  - RESTLESSNESS [None]
  - SINUS TACHYCARDIA [None]
  - TREMOR [None]
  - URINE OUTPUT DECREASED [None]
  - WHITE BLOOD CELL COUNT INCREASED [None]
